FAERS Safety Report 20762179 (Version 1)
Quarter: 2022Q2

REPORT INFORMATION
  Report Type: Spontaneous
  Country: IT (occurrence: IT)
  Receive Date: 20220428
  Receipt Date: 20220428
  Transmission Date: 20220720
  Serious: Yes (Hospitalization)
  Sender: FDA-Public Use
  Company Number: IT-MYLANLABS-2022M1030460

PATIENT
  Age: 55 Year
  Sex: Female

DRUGS (1)
  1. BACLOFEN [Suspect]
     Active Substance: BACLOFEN
     Indication: Muscle spasticity
     Dosage: 75 MICROGRAM, QD, VIA PUMP
     Route: 037
     Dates: start: 2017

REACTIONS (2)
  - Metabolic encephalopathy [Recovering/Resolving]
  - Drug withdrawal syndrome [Recovering/Resolving]
